FAERS Safety Report 12840014 (Version 15)
Quarter: 2023Q4

REPORT INFORMATION
  Report Type: Spontaneous
  Country: US (occurrence: US)
  Receive Date: 20161012
  Receipt Date: 20231204
  Transmission Date: 20240109
  Serious: Yes (Other)
  Sender: FDA-Public Use
  Company Number: US-PFIZER INC-2016471039

PATIENT
  Age: 83 Year
  Sex: Female
  Weight: 54.43 kg

DRUGS (18)
  1. TOVIAZ [Suspect]
     Active Substance: FESOTERODINE FUMARATE
     Indication: Urinary incontinence
     Dosage: UNK
     Dates: start: 2012
  2. TOVIAZ [Suspect]
     Active Substance: FESOTERODINE FUMARATE
     Dosage: 8 MG, 1X/DAY
     Route: 048
     Dates: start: 2013, end: 201603
  3. TOVIAZ [Suspect]
     Active Substance: FESOTERODINE FUMARATE
     Dosage: 8 MG, 1X/DAY
     Dates: start: 201610, end: 202011
  4. TOVIAZ [Suspect]
     Active Substance: FESOTERODINE FUMARATE
     Dosage: UNK
     Dates: end: 20201124
  5. TOVIAZ [Suspect]
     Active Substance: FESOTERODINE FUMARATE
     Dosage: UNK
     Dates: start: 20210310
  6. TOVIAZ [Suspect]
     Active Substance: FESOTERODINE FUMARATE
     Dosage: 8 MG, 1X/DAY
     Dates: start: 20210318
  7. TOVIAZ [Suspect]
     Active Substance: FESOTERODINE FUMARATE
     Dosage: UNK
     Dates: start: 20210415
  8. TOVIAZ [Suspect]
     Active Substance: FESOTERODINE FUMARATE
     Dosage: 8 MG, 1X/DAY
     Route: 048
     Dates: start: 20211214
  9. SYMBICORT [Concomitant]
     Active Substance: BUDESONIDE\FORMOTEROL FUMARATE DIHYDRATE
     Indication: Asthma
     Dosage: 2 DF, 2X/DAY
     Dates: start: 2010
  10. POTASSIUM [Concomitant]
     Active Substance: POTASSIUM
     Indication: Blood potassium decreased
     Dosage: 10 MEQ, 1X/DAY
     Route: 048
     Dates: start: 2015
  11. AMLODIPINE [Concomitant]
     Active Substance: AMLODIPINE BESYLATE
     Indication: Hypertension
     Dosage: 5 MG, 1X/DAY
     Route: 048
     Dates: start: 2010
  12. AMLODIPINE [Concomitant]
     Active Substance: AMLODIPINE BESYLATE
     Dosage: ONE TABLET IN THE MORNING AND TWO AND 1/2 IN THE EVENING
     Route: 048
  13. AMLODIPINE [Concomitant]
     Active Substance: AMLODIPINE BESYLATE
     Dosage: 5MG IN THE MORNING AND 2.5 MG IN THE EVENING
     Route: 048
     Dates: start: 2016
  14. LOSARTAN [Concomitant]
     Active Substance: LOSARTAN
     Indication: Hypertension
     Dosage: (ALSO REPORTED 50MG DAILY)
     Route: 048
     Dates: start: 2012
  15. NEXIUM [Concomitant]
     Active Substance: ESOMEPRAZOLE MAGNESIUM
     Indication: Gastrooesophageal reflux disease
     Dosage: 40 MG, 2X/DAY
     Route: 048
     Dates: start: 2010
  16. LEVOTHYROXINE [Concomitant]
     Active Substance: LEVOTHYROXINE
     Indication: Thyroid disorder
     Dosage: 50 UG, 1X/DAY
     Route: 048
     Dates: start: 2012
  17. VITAMIN D [Concomitant]
     Active Substance: VITAMIN D NOS
     Indication: Vitamin supplementation
     Dosage: 1000 MG, 1X/DAY
     Route: 048
     Dates: start: 2014
  18. CRESTOR [Concomitant]
     Active Substance: ROSUVASTATIN CALCIUM
     Indication: Blood cholesterol increased
     Dosage: 5 MG, 1X/DAY
     Route: 048
     Dates: start: 2010

REACTIONS (20)
  - Loss of consciousness [Recovered/Resolved]
  - Hypotension [Unknown]
  - Hypoacusis [Unknown]
  - Carpal tunnel syndrome [Not Recovered/Not Resolved]
  - Arthralgia [Unknown]
  - Drug ineffective [Unknown]
  - Therapeutic product effect incomplete [Not Recovered/Not Resolved]
  - Bladder disorder [Unknown]
  - Fall [Unknown]
  - Hypertension [Unknown]
  - Dizziness [Unknown]
  - Asthenia [Unknown]
  - Osteoporosis [Not Recovered/Not Resolved]
  - Gait disturbance [Unknown]
  - Blood pressure abnormal [Unknown]
  - Arthritis [Not Recovered/Not Resolved]
  - Urinary tract infection [Unknown]
  - Body height decreased [Recovered/Resolved]
  - Myopia [Recovered/Resolved]
  - Infection [Unknown]

NARRATIVE: CASE EVENT DATE: 20140101
